FAERS Safety Report 6434290-0 (Version None)
Quarter: 2009Q4

REPORT INFORMATION
  Report Type: 
  Country: None (occurrence: None)
  Receive Date: 20091110
  Receipt Date: 20091030
  Transmission Date: 20100525
  Serious: Yes (Hospitalization, Other)
  Sender: FDA-Public Use
  Company Number: US-AMGEN-QUU372251

PATIENT
  Sex: Female

DRUGS (2)
  1. ENBREL [Suspect]
     Indication: PSORIASIS
     Route: 058
  2. ENBREL [Suspect]
     Indication: PSORIATIC ARTHROPATHY

REACTIONS (6)
  - ARTHRITIS INFECTIVE [None]
  - DERMATITIS ALLERGIC [None]
  - HYPERSENSITIVITY [None]
  - OSTEOARTHRITIS [None]
  - RASH PRURITIC [None]
  - STAPHYLOCOCCAL INFECTION [None]
